FAERS Safety Report 7805391-7 (Version None)
Quarter: 2011Q4

REPORT INFORMATION
  Report Type: 
  Country: None (occurrence: None)
  Receive Date: 20111010
  Receipt Date: 20111006
  Transmission Date: 20120403
  Serious: Yes (Hospitalization, Other)
  Sender: FDA-Public Use
  Company Number: US-PFIZER INC-2011227339

PATIENT
  Sex: Male
  Weight: 100 kg

DRUGS (3)
  1. PROZAC [Concomitant]
     Dosage: UNK
  2. DILANTIN-125 [Suspect]
     Indication: CONVULSION
     Dosage: 12 ML, 2X/DAY
     Route: 048
     Dates: start: 20110901, end: 20110925
  3. DIOVAN [Concomitant]
     Indication: HYPERTENSION
     Dosage: UNK

REACTIONS (4)
  - SWELLING [None]
  - ERYTHEMA [None]
  - RASH GENERALISED [None]
  - AURICULAR SWELLING [None]
